FAERS Safety Report 6502668-2 (Version None)
Quarter: 2009Q4

REPORT INFORMATION
  Report Type: 
  Country: None (occurrence: None)
  Receive Date: 20091127
  Receipt Date: 20090303
  Transmission Date: 20100525
  Serious: Yes (Other)
  Sender: FDA-Public Use
  Company Number: WAES 0903USA00611

PATIENT
  Age: 66 Year
  Sex: Female
  Weight: 62.5964 kg

DRUGS (2)
  1. FOSAMAX [Suspect]
     Indication: OSTEOPOROSIS
     Dosage: 70 MG/WKY/PO
     Route: 048
     Dates: start: 20020128, end: 20080801
  2. CALCIUM (+) VITAMI [Concomitant]

REACTIONS (36)
  - ABSCESS [None]
  - ANXIETY [None]
  - ARTERIOSCLEROSIS [None]
  - ARTHRALGIA [None]
  - ARTHROPATHY [None]
  - ASTHMA [None]
  - BLOOD TRIGLYCERIDES INCREASED [None]
  - CHEST PAIN [None]
  - COLONIC POLYP [None]
  - DIARRHOEA [None]
  - DIZZINESS [None]
  - GLUCOSE TOLERANCE IMPAIRED [None]
  - HAEMATURIA [None]
  - HAEMORRHOIDS [None]
  - HEADACHE [None]
  - HYPERLIPIDAEMIA [None]
  - HYPERTENSION [None]
  - INJECTION SITE HAEMATOMA [None]
  - KNEE OPERATION [None]
  - METABOLIC SYNDROME [None]
  - MUSCLE SPASMS [None]
  - OSTEONECROSIS [None]
  - PAIN [None]
  - PANIC ATTACK [None]
  - RECTAL HAEMORRHAGE [None]
  - RESECTION OF RECTUM [None]
  - RESORPTION BONE INCREASED [None]
  - RESTLESS LEGS SYNDROME [None]
  - RHINITIS ALLERGIC [None]
  - ROAD TRAFFIC ACCIDENT [None]
  - SCIATICA [None]
  - SCOLIOSIS [None]
  - SLEEP DISORDER [None]
  - THROMBOANGIITIS OBLITERANS [None]
  - TOOTH ABSCESS [None]
  - URINARY TRACT INFECTION [None]
